FAERS Safety Report 4664509-8 (Version None)
Quarter: 2005Q2

REPORT INFORMATION
  Report Type: 
  Country: None (occurrence: None)
  Receive Date: 20050518
  Receipt Date: 20050202
  Transmission Date: 20051028
  Serious: Yes (Hospitalization)
  Sender: FDA-Public Use
  Company Number: US-BOEHRINGER INGELHEIM PHARMACEUTICALS, INC.-2005-BP-01646BP

PATIENT

DRUGS (2)
  1. ATROVENT [Suspect]
     Indication: RESPIRATORY DISTRESS
     Dates: start: 20040910
  2. ALBUTEROL [Concomitant]

REACTIONS (3)
  - EYE DISORDER [None]
  - MONOPLEGIA [None]
  - RESPIRATORY FAILURE [None]
